FAERS Safety Report 9639109 (Version 3)
Quarter: 2013Q4

REPORT INFORMATION
  Report Type: Spontaneous
  Country: DE (occurrence: None)
  Receive Date: 20131010
  Receipt Date: 20131120
  Transmission Date: 20140711
  Serious: Yes (Death)
  Sender: FDA-Public Use
  Company Number: 2013038279

PATIENT
  Age: 51 Year
  Sex: Female

DRUGS (5)
  1. PRIVIGEN [Suspect]
     Indication: T-CELL LYMPHOMA
     Dosage: 10 G TOTAL, INFUSIONS RATE: MIN 0.24 MAX. 3.2 ML/MIN.?30-DEC-2012 12:30 TO?1 HOUR 5 MINS
     Route: 042
     Dates: start: 20121230
  2. CORTICOSTEROIDS (CORTICOSTEROIDS) [Concomitant]
  3. OTHER ANTIMYCOTICS FOR SYSTEMIC USE (OTHER ANTIMYCOTICS FOR SYSTEMIC USE) [Concomitant]
  4. ANTIVIRALS FOR SYSTEMIC USE (ANTIVIRALS FOR SYSTEMIC USE) [Concomitant]
  5. ANTIBIOTICS (ANTIBIOTICS) [Concomitant]

REACTIONS (1)
  - Septic shock [None]
